FAERS Safety Report 18241868 (Version 3)
Quarter: 2022Q2

REPORT INFORMATION
  Report Type: Spontaneous
  Country: JP (occurrence: JP)
  Receive Date: 20200908
  Receipt Date: 20220624
  Transmission Date: 20220721
  Serious: Yes (Death, Hospitalization, Other)
  Sender: FDA-Public Use
  Company Number: JP-TEVA-2020-JP-1824705

PATIENT
  Age: 65 Year
  Sex: Male

DRUGS (8)
  1. CYTARABINE [Suspect]
     Active Substance: CYTARABINE
     Indication: Angioimmunoblastic T-cell lymphoma
     Route: 065
     Dates: start: 2018
  2. ETOPOSIDE [Suspect]
     Active Substance: ETOPOSIDE
     Indication: Angioimmunoblastic T-cell lymphoma
     Route: 065
     Dates: start: 2018
  3. PRALATREXATE [Suspect]
     Active Substance: PRALATREXATE
     Indication: Angioimmunoblastic T-cell lymphoma
     Route: 065
  4. PRALATREXATE [Suspect]
     Active Substance: PRALATREXATE
     Dosage: EVERY 2 OR 3 WEEKS
     Route: 065
  5. PRALATREXATE [Suspect]
     Active Substance: PRALATREXATE
     Dosage: EVERY WEEK OR EVERY TWO WEEKS
     Route: 065
  6. CYCLOPHOSPHAMIDE [Suspect]
     Active Substance: CYCLOPHOSPHAMIDE
     Indication: Angioimmunoblastic T-cell lymphoma
     Route: 065
     Dates: start: 2018
  7. DEXAMETHASONE [Suspect]
     Active Substance: DEXAMETHASONE
     Indication: Angioimmunoblastic T-cell lymphoma
     Route: 065
     Dates: start: 2018
  8. LEUCOVORIN [Concomitant]
     Active Substance: LEUCOVORIN
     Indication: Chemotherapy toxicity attenuation
     Route: 048

REACTIONS (6)
  - Erythema multiforme [Unknown]
  - Stomatitis [Recovered/Resolved]
  - Thrombocytopenia [Unknown]
  - Neutropenia [Unknown]
  - Drug ineffective [Fatal]
  - Drug resistance [Unknown]
